FAERS Safety Report 23854866 (Version 2)
Quarter: 2024Q3

REPORT INFORMATION
  Report Type: Spontaneous
  Country: US (occurrence: US)
  Receive Date: 20240514
  Receipt Date: 20240812
  Transmission Date: 20241016
  Serious: No
  Sender: ANI
  Company Number: US-ANIPHARMA-2024-US-005947

PATIENT
  Sex: Male

DRUGS (2)
  1. CORTICOTROPIN [Suspect]
     Active Substance: CORTICOTROPIN
     Indication: Nephrotic syndrome
     Dosage: 80 UNITS TWICE A WEEK
     Route: 058
  2. FAMOTIDINE [Concomitant]
     Active Substance: FAMOTIDINE
     Route: 065

REACTIONS (3)
  - Product dose omission issue [Unknown]
  - Swelling [Unknown]
  - Renal impairment [Not Recovered/Not Resolved]
